FAERS Safety Report 21513016 (Version 2)
Quarter: 2022Q4

REPORT INFORMATION
  Report Type: Spontaneous
  Country: US (occurrence: US)
  Receive Date: 20221027
  Receipt Date: 20221114
  Transmission Date: 20230113
  Serious: Yes (Other)
  Sender: FDA-Public Use
  Company Number: US-009507513-2210USA007855

PATIENT
  Age: 79 Year
  Sex: Female

DRUGS (1)
  1. MOLNUPIRAVIR [Suspect]
     Active Substance: MOLNUPIRAVIR
     Indication: COVID-19 treatment
     Dosage: 4 TABLETS, TWICE DAILY
     Route: 048
     Dates: start: 20221020

REACTIONS (5)
  - Choking [Not Recovered/Not Resolved]
  - Drug ineffective [Unknown]
  - Product use complaint [Unknown]
  - Wrong technique in product usage process [Unknown]
  - Circumstance or information capable of leading to medication error [Unknown]

NARRATIVE: CASE EVENT DATE: 20221001
